FAERS Safety Report 16296771 (Version 1)
Quarter: 2019Q2

REPORT INFORMATION
  Report Type: Spontaneous
  Country: US (occurrence: US)
  Receive Date: 20190509
  Receipt Date: 20190509
  Transmission Date: 20190711
  Serious: Yes (Other)
  Sender: FDA-Public Use
  Company Number: None

PATIENT
  Age: 69 Year
  Sex: Male
  Weight: 72.9 kg

DRUGS (6)
  1. CPAP [Concomitant]
     Active Substance: DEVICE
  2. LORSARTAN POTASSIUM 25 MG PER TABLET [Suspect]
     Active Substance: LOSARTAN POTASSIUM
     Indication: CARDIAC FAILURE
     Dosage: ?          QUANTITY:2 TABLET(S);?
     Route: 048
  3. VITAMINS [Concomitant]
     Active Substance: VITAMINS
  4. REFLUX [Concomitant]
     Active Substance: METHENAMINE MANDELATE
  5. CANCER MEDICATIONS [Concomitant]
  6. DEPRESSION MEDICATION [Concomitant]
     Active Substance: UNSPECIFIED INGREDIENT

REACTIONS (4)
  - Syncope [None]
  - Chronic lymphocytic leukaemia [None]
  - Neoplasm malignant [None]
  - Transfusion [None]

NARRATIVE: CASE EVENT DATE: 20190101
